FAERS Safety Report 7215021-3 (Version None)
Quarter: 2011Q1

REPORT INFORMATION
  Report Type: 
  Country: None (occurrence: None)
  Receive Date: 20110104
  Receipt Date: 20110104
  Transmission Date: 20110831
  Serious: No
  Sender: FDA-Public Use
  Company Number: None

PATIENT

DRUGS (4)
  1. LYRICA [Suspect]
     Indication: ARTHRALGIA
     Dosage: TWICE DAILY PO
     Route: 048
     Dates: start: 20051116, end: 20060517
  2. LYRICA [Suspect]
     Indication: PAIN IN EXTREMITY
     Dosage: TWICE DAILY PO
     Route: 048
     Dates: start: 20051116, end: 20060517
  3. LYRICA [Suspect]
     Indication: ARTHRALGIA
     Dosage: TWICE DAILY PO
     Route: 048
     Dates: start: 20050413, end: 20100602
  4. LYRICA [Suspect]
     Indication: PAIN IN EXTREMITY
     Dosage: TWICE DAILY PO
     Route: 048
     Dates: start: 20050413, end: 20100602

REACTIONS (4)
  - INSOMNIA [None]
  - HEADACHE [None]
  - CONVULSION [None]
  - LOSS OF EMPLOYMENT [None]
